FAERS Safety Report 6740501-4 (Version None)
Quarter: 2010Q2

REPORT INFORMATION
  Report Type: 
  Country: None (occurrence: None)
  Receive Date: 20100520
  Receipt Date: 20100212
  Transmission Date: 20101027
  Serious: Yes (Other)
  Sender: FDA-Public Use
  Company Number: 2010019792

PATIENT
  Age: 25 Year
  Sex: Female
  Weight: 59 kg

DRUGS (3)
  1. DEPO-PROVERA [Suspect]
     Indication: ENDOMETRIOSIS
     Dosage: 150 MG, TWO TIMES EVERY TWELVE WEEKS
     Dates: start: 20080101
  2. DEPO-PROVERA [Suspect]
     Indication: OFF LABEL USE
     Dosage: 150 MG, TWO TIMES EVERY TWELVE WEEKS
     Dates: start: 20080101
  3. ELMIRON [Concomitant]

REACTIONS (2)
  - OSTEOPENIA [None]
  - SCAR [None]
